FAERS Safety Report 7292348-0 (Version None)
Quarter: 2011Q1

REPORT INFORMATION
  Report Type: 
  Country: None (occurrence: None)
  Receive Date: 20110215
  Receipt Date: 20110201
  Transmission Date: 20110831
  Serious: Yes (Other)
  Sender: FDA-Public Use
  Company Number: US-JNJFOC-20110202324

PATIENT

DRUGS (7)
  1. CYCLOPHOSPHAMIDE [Suspect]
     Indication: NEOPLASM MALIGNANT
     Route: 048
  2. TRIMETHOPRIM + SULFAMETHOXAZOLE [Concomitant]
     Indication: ANTIFUNGAL PROPHYLAXIS
     Route: 048
  3. GRANULOCYTE COLONY-STIMULATING FACTOR [Suspect]
     Indication: NEOPLASM MALIGNANT
     Route: 065
  4. DOXORUBICIN HYDROCHLORIDE [Suspect]
     Indication: NEOPLASM MALIGNANT
     Route: 042
  5. DEXAMETHASONE [Concomitant]
     Indication: FLUID RETENTION
     Route: 048
  6. TAXOTERE [Suspect]
     Indication: NEOPLASM MALIGNANT
     Route: 042
  7. DEXAMETHASONE [Concomitant]
     Route: 042

REACTIONS (3)
  - PROTHROMBIN TIME PROLONGED [None]
  - NEUTROPENIA [None]
  - LEUKOPENIA [None]
